FAERS Safety Report 20370317 (Version 1)
Quarter: 2022Q1

REPORT INFORMATION
  Report Type: Spontaneous
  Country: US (occurrence: None)
  Receive Date: 20220123
  Receipt Date: 20220123
  Transmission Date: 20220423
  Serious: No
  Sender: FDA-Public Use
  Company Number: None

PATIENT
  Age: 36 Year
  Sex: Male
  Weight: 126 kg

DRUGS (1)
  1. SUMATRIPTAN [Suspect]
     Active Substance: SUMATRIPTAN
     Indication: Migraine
     Dosage: OTHER QUANTITY : 9 TABLET(S);?FREQUENCY : AS NEEDED;?
     Route: 048
     Dates: start: 20220122, end: 20220122

REACTIONS (2)
  - Dizziness [None]
  - Urticaria [None]

NARRATIVE: CASE EVENT DATE: 20220123
